FAERS Safety Report 13407584 (Version 1)
Quarter: 2017Q2

REPORT INFORMATION
  Report Type: Spontaneous
  Country: US (occurrence: US)
  Receive Date: 20170405
  Receipt Date: 20170405
  Transmission Date: 20170830
  Serious: Yes (Other)
  Sender: FDA-Public Use
  Company Number: US-ENDO PHARMACEUTICALS INC-2017-001506

PATIENT
  Sex: Male

DRUGS (6)
  1. MORPHINE SULFATE ER 30MG [Suspect]
     Active Substance: MORPHINE SULFATE
     Indication: PRODUCT USED FOR UNKNOWN INDICATION
     Dosage: UNK UNK, UNKNOWN
     Route: 065
  2. VFEND [Suspect]
     Active Substance: VORICONAZOLE
     Indication: ORAL FUNGAL INFECTION
     Dosage: 1 DF, BID
     Route: 048
     Dates: start: 201601
  3. VFEND [Suspect]
     Active Substance: VORICONAZOLE
     Indication: SINUSITIS
  4. OXYCODONE HCL 15MG [Suspect]
     Active Substance: OXYCODONE HYDROCHLORIDE
     Indication: PRODUCT USED FOR UNKNOWN INDICATION
     Dosage: UNK UNK, UNKNOWN
     Route: 065
  5. FLUTICASONE. [Suspect]
     Active Substance: FLUTICASONE
     Indication: PRODUCT USED FOR UNKNOWN INDICATION
     Dosage: UNK UNK, UNKNOWN
     Route: 065
  6. TAMSULOSIN HCL [Suspect]
     Active Substance: TAMSULOSIN
     Indication: PRODUCT USED FOR UNKNOWN INDICATION
     Dosage: UNK UNK, UNKNOWN
     Route: 065

REACTIONS (4)
  - Blood pressure decreased [Unknown]
  - Loss of consciousness [Unknown]
  - Drug interaction [Unknown]
  - Hallucination [Unknown]
